FAERS Safety Report 14598484 (Version 2)
Quarter: 2022Q3

REPORT INFORMATION
  Report Type: Spontaneous
  Country: US (occurrence: US)
  Receive Date: 20180305
  Receipt Date: 20220728
  Transmission Date: 20221026
  Serious: No
  Sender: FDA-Public Use
  Company Number: US-SHIRE-US201735341

PATIENT
  Sex: Male

DRUGS (4)
  1. VYVANSE [Suspect]
     Active Substance: LISDEXAMFETAMINE DIMESYLATE
     Indication: Circadian rhythm sleep disorder
     Route: 065
  2. VYVANSE [Suspect]
     Active Substance: LISDEXAMFETAMINE DIMESYLATE
     Indication: Attention deficit hyperactivity disorder
  3. TESTOSTERONE [Suspect]
     Active Substance: TESTOSTERONE
     Indication: Product used for unknown indication
     Route: 065
  4. PRILOSEC [Concomitant]
     Active Substance: OMEPRAZOLE MAGNESIUM
     Indication: Prophylaxis
     Route: 065

REACTIONS (13)
  - Injection site pain [Unknown]
  - Pain in extremity [Unknown]
  - Appetite disorder [Unknown]
  - Thirst [Unknown]
  - Peripheral swelling [Unknown]
  - Abdominal distension [Unknown]
  - Condition aggravated [Unknown]
  - Laryngeal disorder [Unknown]
  - Body fat disorder [Unknown]
  - Weight increased [Unknown]
  - Bile duct pressure [Unknown]
  - Rib deformity [Unknown]
  - Hip deformity [Unknown]
